FAERS Safety Report 7859018-9 (Version None)
Quarter: 2011Q4

REPORT INFORMATION
  Report Type: 
  Country: None (occurrence: None)
  Receive Date: 20111027
  Receipt Date: 20111015
  Transmission Date: 20120403
  Serious: Yes (Hospitalization, Other)
  Sender: FDA-Public Use
  Company Number: ES-JNJFOC-20111007791

PATIENT
  Age: 21 Year
  Sex: Male

DRUGS (12)
  1. METAMIZOL [Concomitant]
     Indication: PAIN
     Route: 065
  2. AMITRIPTYLINE HCL [Concomitant]
     Indication: ANALGESIC THERAPY
     Route: 065
  3. DURAGESIC-100 [Suspect]
     Route: 062
  4. MORPHINE CHLORIDE [Concomitant]
     Indication: TUMOUR PAIN
     Route: 058
  5. DEXAMETHASONE [Concomitant]
     Indication: ANALGESIC THERAPY
     Route: 065
  6. AMITRIPTYLINE HCL [Concomitant]
     Route: 065
  7. DURAGESIC-100 [Suspect]
     Indication: TUMOUR PAIN
     Route: 062
  8. NAPROXEN [Concomitant]
     Route: 065
  9. DURAGESIC-100 [Suspect]
     Route: 062
  10. NAPROXEN [Concomitant]
     Indication: PRODUCT USED FOR UNKNOWN INDICATION
     Route: 065
  11. DIAZEPAM [Concomitant]
     Indication: PRODUCT USED FOR UNKNOWN INDICATION
     Route: 065
  12. DURAGESIC-100 [Suspect]
     Route: 062

REACTIONS (9)
  - TOXICITY TO VARIOUS AGENTS [None]
  - PYREXIA [None]
  - DISEASE PROGRESSION [None]
  - NERVOUS SYSTEM DISORDER [None]
  - ANXIETY [None]
  - NEUROPATHY PERIPHERAL [None]
  - INADEQUATE ANALGESIA [None]
  - PLATELET COUNT DECREASED [None]
  - PAIN IN EXTREMITY [None]
